FAERS Safety Report 22071147 (Version 3)
Quarter: 2023Q1

REPORT INFORMATION
  Report Type: Spontaneous
  Country: US (occurrence: US)
  Receive Date: 20230307
  Receipt Date: 20230328
  Transmission Date: 20230417
  Serious: Yes (Other)
  Sender: FDA-Public Use
  Company Number: US-PFIZER INC-PV202300034761

PATIENT
  Age: 35 Year
  Sex: Male
  Weight: 128.8 kg

DRUGS (3)
  1. GENOTROPIN [Suspect]
     Active Substance: SOMATROPIN
     Indication: Head injury
     Dosage: 0.4 MG, DAILY(0.4MG/DAY 7 DAYS/WK)
     Dates: start: 202302
  2. GENOTROPIN [Suspect]
     Active Substance: SOMATROPIN
     Indication: Growth hormone deficiency
  3. GENOTROPIN [Suspect]
     Active Substance: SOMATROPIN
     Indication: Growth hormone deficiency
     Dosage: UNK

REACTIONS (16)
  - Hypothalamo-pituitary disorder [Unknown]
  - Suicidal ideation [Unknown]
  - Crying [Unknown]
  - Depression [Unknown]
  - Abdominal discomfort [Unknown]
  - Pain [Unknown]
  - Decreased appetite [Unknown]
  - Blood testosterone abnormal [Unknown]
  - Vitamin B12 abnormal [Unknown]
  - Device leakage [Unknown]
  - Accidental exposure to product [Unknown]
  - Exposure via skin contact [Unknown]
  - Device use error [Unknown]
  - Product administered at inappropriate site [Unknown]
  - Product supply issue [Unknown]
  - Drug dose omission by device [Unknown]
